FAERS Safety Report 17087853 (Version 1)
Quarter: 2019Q4

REPORT INFORMATION
  Report Type: Spontaneous
  Country: US (occurrence: US)
  Receive Date: 20191031
  Receipt Date: 20191031
  Transmission Date: 20200122
  Serious: Yes (Hospitalization)
  Sender: FDA-Public Use
  Company Number: None

PATIENT
  Sex: Male

DRUGS (16)
  1. ALLOPURINOL. [Concomitant]
     Active Substance: ALLOPURINOL
  2. METOPROL SUC [Concomitant]
  3. PANTOPRAZOLE [Concomitant]
     Active Substance: PANTOPRAZOLE
  4. MYCOPHENOLATE 500MG [Suspect]
     Active Substance: MYCOPHENOLIC ACID
     Indication: MYELOID LEUKAEMIA
     Dosage: ?          OTHER FREQUENCY:2 TABS BID 10 DAYS;?
     Route: 048
     Dates: start: 20191001
  5. AMLOD/BENAZP [Concomitant]
  6. LISINIOPRIL [Concomitant]
     Active Substance: LISINOPRIL
  7. ATORVASTATIN [Concomitant]
     Active Substance: ATORVASTATIN
  8. GABAPENTIN. [Concomitant]
     Active Substance: GABAPENTIN
  9. MAGNESIUM-OX [Concomitant]
  10. MORPHINE SUL [Concomitant]
     Active Substance: MORPHINE SULFATE
  11. ELIQUIS [Concomitant]
     Active Substance: APIXABAN
  12. ACYCLOVIR. [Concomitant]
     Active Substance: ACYCLOVIR
  13. DIGOX [Concomitant]
     Active Substance: DIGOXIN
  14. BISOPROL FUM [Concomitant]
     Active Substance: BISOPROLOL FUMARATE
  15. TACROLIMUS 0.5MG [Suspect]
     Active Substance: TACROLIMUS
     Indication: MYELOID LEUKAEMIA
     Dosage: ?          OTHER FREQUENCY:5 CAPS BID;?
     Route: 048
     Dates: start: 20191001
  16. TAMSULOSIN [Concomitant]
     Active Substance: TAMSULOSIN

REACTIONS (3)
  - Asthenia [None]
  - Decreased appetite [None]
  - Loss of consciousness [None]
